FAERS Safety Report 7314814-1 (Version None)
Quarter: 2011Q1

REPORT INFORMATION
  Report Type: 
  Country: None (occurrence: None)
  Receive Date: 20110225
  Receipt Date: 20101215
  Transmission Date: 20110831
  Serious: No
  Sender: FDA-Public Use
  Company Number: US-MYLANLABS-2010S1023184

PATIENT
  Age: 29 Year
  Sex: Female

DRUGS (2)
  1. LOW-OGESTREL [Concomitant]
     Indication: CONTRACEPTION
     Dosage: ALSO DISPENSED LO-OVRAL
     Route: 048
     Dates: start: 20090201
  2. AMNESTEEM [Suspect]
     Indication: ACNE
     Route: 048
     Dates: start: 20101001, end: 20101115

REACTIONS (1)
  - THERMAL BURN [None]
